FAERS Safety Report 12900531 (Version 4)
Quarter: 2017Q1

REPORT INFORMATION
  Report Type: Spontaneous
  Country: US (occurrence: US)
  Receive Date: 20161101
  Receipt Date: 20170105
  Transmission Date: 20170428
  Serious: Yes (Death, Hospitalization)
  Sender: FDA-Public Use
  Company Number: US-ACTELION-A-US2016-144112

PATIENT
  Age: 74 Year
  Sex: Female

DRUGS (17)
  1. VELETRI [Suspect]
     Active Substance: EPOPROSTENOL
     Dosage: 4 MG/KG, PER MIN
     Route: 042
     Dates: end: 20161019
  2. OPSUMIT [Suspect]
     Active Substance: MACITENTAN
     Indication: PULMONARY ARTERIAL HYPERTENSION
     Dosage: 10 MG, QD
     Route: 048
     Dates: start: 20140327
  3. METOLAZONE. [Concomitant]
     Active Substance: METOLAZONE
  4. COUMADIN [Concomitant]
     Active Substance: WARFARIN SODIUM
  5. UPTRAVI [Suspect]
     Active Substance: SELEXIPAG
     Indication: PULMONARY ARTERIAL HYPERTENSION
     Dosage: 800 MCG, BID
     Route: 048
     Dates: start: 20160507, end: 20161019
  6. PRAVASTATIN SODIUM. [Concomitant]
     Active Substance: PRAVASTATIN SODIUM
  7. ADCIRCA [Concomitant]
     Active Substance: TADALAFIL
  8. NEURONTIN [Concomitant]
     Active Substance: GABAPENTIN
  9. ALENDRONATE SODIUM. [Concomitant]
     Active Substance: ALENDRONATE SODIUM
  10. VELETRI [Suspect]
     Active Substance: EPOPROSTENOL
     Indication: PULMONARY ARTERIAL HYPERTENSION
     Dosage: 4.5 MG/KG, PER MIN
     Route: 042
     Dates: end: 20161019
  11. SPIRONOLACTONE. [Concomitant]
     Active Substance: SPIRONOLACTONE
  12. KLOR-CON [Concomitant]
     Active Substance: POTASSIUM CHLORIDE
  13. COLCRYS [Concomitant]
     Active Substance: COLCHICINE
  14. ATIVAN [Concomitant]
     Active Substance: LORAZEPAM
  15. OPSUMIT [Suspect]
     Active Substance: MACITENTAN
     Dosage: 10 MG, QD
     Route: 048
     Dates: start: 20160225
  16. METOPROLOL SUCCINATE. [Concomitant]
     Active Substance: METOPROLOL SUCCINATE
  17. MORPHINE SULFATE. [Concomitant]
     Active Substance: MORPHINE SULFATE

REACTIONS (16)
  - Pulmonary arterial hypertension [Fatal]
  - Orthopnoea [Unknown]
  - Somnolence [Fatal]
  - Right ventricular failure [Fatal]
  - Chronic obstructive pulmonary disease [Unknown]
  - Jugular vein distension [Fatal]
  - Acute respiratory failure [Fatal]
  - Right ventricular dysfunction [Unknown]
  - Condition aggravated [Fatal]
  - Oedema peripheral [Fatal]
  - Flushing [Recovering/Resolving]
  - Dyspnoea paroxysmal nocturnal [Unknown]
  - Hypotension [Recovering/Resolving]
  - Dyspnoea [Fatal]
  - Hypoxia [Fatal]
  - Hypercapnia [Unknown]
